FAERS Safety Report 20654634 (Version 1)
Quarter: 2022Q1

REPORT INFORMATION
  Report Type: Spontaneous
  Country: US (occurrence: None)
  Receive Date: 20220329
  Receipt Date: 20220329
  Transmission Date: 20220424
  Serious: Yes (Hospitalization)
  Sender: FDA-Public Use
  Company Number: None

PATIENT
  Age: 62 Year
  Sex: Female

DRUGS (10)
  1. AMBRISENTAN [Suspect]
     Active Substance: AMBRISENTAN
     Indication: Pulmonary arterial hypertension
     Dosage: FREQUENCY : DAILY;?
     Route: 048
     Dates: start: 20211117
  2. ERYTHROPOIETIN [Concomitant]
     Active Substance: ERYTHROPOIETIN
  3. BUMETANIDE [Concomitant]
     Active Substance: BUMETANIDE
  4. RENVELA [Concomitant]
     Active Substance: SEVELAMER CARBONATE
  5. FERROUS FUMARATE [Concomitant]
     Active Substance: FERROUS FUMARATE
  6. COLCHICINE [Concomitant]
     Active Substance: COLCHICINE
  7. PREDNISONE [Concomitant]
     Active Substance: PREDNISONE
  8. ALBUTEROL SULFATE [Concomitant]
     Active Substance: ALBUTEROL SULFATE
  9. vitamin B complex-Vit C [Concomitant]
  10. triamcinolone top cream [Concomitant]

REACTIONS (4)
  - Hypotension [None]
  - Respiratory failure [None]
  - Therapy cessation [None]
  - Dyspnoea exertional [None]

NARRATIVE: CASE EVENT DATE: 20220307
